FAERS Safety Report 10574612 (Version 10)
Quarter: 2015Q1

REPORT INFORMATION
  Report Type: Report from Study
  Country: US (occurrence: US)
  Receive Date: 20141110
  Receipt Date: 20150318
  Transmission Date: 20150720
  Serious: Yes (Hospitalization)
  Sender: FDA-Public Use
  Company Number: US-009507513-1411USA003613

PATIENT
  Age: 51 Year
  Sex: Male
  Weight: 77.3 kg

DRUGS (9)
  1. COLACE [Concomitant]
     Active Substance: DOCUSATE SODIUM
     Indication: CONSTIPATION
     Dosage: 100 MG, BID
     Route: 048
     Dates: start: 201308
  2. OXYCODONE [Concomitant]
     Active Substance: OXYCODONE
     Indication: PAIN
     Dosage: 15 MG, TID
     Route: 047
     Dates: start: 20140917
  3. PEMBROLIZUMAB. [Suspect]
     Active Substance: PEMBROLIZUMAB
     Indication: HEAD AND NECK CANCER
     Dosage: 200 MG, Q3W
     Route: 042
     Dates: start: 20141009, end: 20141009
  4. LIDOCAINE. [Concomitant]
     Active Substance: LIDOCAINE
     Indication: ORAL PAIN
     Dosage: 1 APPLICATION, QID
     Route: 048
     Dates: start: 20131014
  5. DIAZEPAM. [Concomitant]
     Active Substance: DIAZEPAM
     Indication: ANXIETY
     Dosage: 5 MG, BID
     Route: 048
     Dates: start: 20140407
  6. PREDNISONE. [Concomitant]
     Active Substance: PREDNISONE
     Indication: OSTEOARTHRITIS
     Dosage: 40 MG, QD
     Route: 048
     Dates: start: 20140407
  7. PEMBROLIZUMAB. [Suspect]
     Active Substance: PEMBROLIZUMAB
     Dosage: 200 MG, Q3W
     Route: 042
     Dates: start: 20141107, end: 20141107
  8. CLINDAMYCIN [Concomitant]
     Active Substance: CLINDAMYCIN\CLINDAMYCIN PHOSPHATE
     Indication: INFECTION
     Dosage: 1 APPLIACTION, BID
     Route: 061
     Dates: start: 20140407
  9. HYDROCORTISONE ACETATE. [Concomitant]
     Active Substance: HYDROCORTISONE ACETATE
     Indication: RASH
     Dosage: DAILY DOSE: 2 APPLICATION, PRN
     Route: 061
     Dates: start: 20141012, end: 20141018

REACTIONS (2)
  - Tongue oedema [Recovered/Resolved with Sequelae]
  - Lip swelling [Recovering/Resolving]

NARRATIVE: CASE EVENT DATE: 20141027
